FAERS Safety Report 26039735 (Version 1)
Quarter: 2025Q4

REPORT INFORMATION
  Report Type: Spontaneous
  Country: EU (occurrence: EU)
  Receive Date: 20251113
  Receipt Date: 20251113
  Transmission Date: 20260117
  Serious: Yes (Death, Other)
  Sender: ACCORD
  Company Number: EU-Accord-511293

PATIENT
  Age: 64 Year
  Sex: Male

DRUGS (2)
  1. DECITABINE [Suspect]
     Active Substance: DECITABINE
     Indication: Acute megakaryocytic leukaemia
  2. VENETOCLAX [Suspect]
     Active Substance: VENETOCLAX
     Indication: Acute megakaryocytic leukaemia

REACTIONS (2)
  - Sepsis [Fatal]
  - Escherichia infection [Fatal]
